FAERS Safety Report 12526851 (Version 1)
Quarter: 2016Q3

REPORT INFORMATION
  Report Type: Spontaneous
  Country: US (occurrence: US)
  Receive Date: 20160705
  Receipt Date: 20160705
  Transmission Date: 20161109
  Serious: Yes (Hospitalization, Other)
  Sender: FDA-Public Use
  Company Number: US-APOTEX-2016AP009553

PATIENT
  Age: 47 Year
  Sex: Female

DRUGS (2)
  1. GABAPENTIN. [Suspect]
     Active Substance: GABAPENTIN
     Indication: PRODUCT USED FOR UNKNOWN INDICATION
     Dosage: 300MG/DAY
     Route: 065
  2. BACLOFEN. [Suspect]
     Active Substance: BACLOFEN
     Indication: MYOCLONUS
     Dosage: 5 MG, TID, AS NEEDED
     Route: 048

REACTIONS (7)
  - Mental impairment [Recovering/Resolving]
  - Generalised tonic-clonic seizure [Unknown]
  - Hypertension [Recovering/Resolving]
  - Unresponsive to stimuli [Unknown]
  - Hypoventilation [Unknown]
  - Neurotoxicity [Unknown]
  - Respiratory failure [Unknown]
